FAERS Safety Report 4599224-2 (Version None)
Quarter: 2005Q1

REPORT INFORMATION
  Report Type: 
  Country: None (occurrence: None)
  Receive Date: 20050127
  Receipt Date: 20041028
  Transmission Date: 20050727
  Serious: No
  Sender: FDA-Public Use
  Company Number: USA041082517

PATIENT
  Age: 49 Year
  Sex: Female

DRUGS (6)
  1. STRATTERA [Suspect]
     Dosage: 60 MG DAY
     Dates: start: 20041001
  2. ZYPREXA [Suspect]
     Indication: SOMNOLENCE
     Dosage: 1.25 MG DAY
  3. GLUCOPHAGE [Concomitant]
  4. ZANTAC [Concomitant]
  5. ZOCOR (SIMVASTATIN RATIOPHARM) [Concomitant]
  6. ASPIRIN [Concomitant]

REACTIONS (2)
  - FATIGUE [None]
  - SOMNOLENCE [None]
